FAERS Safety Report 7292421-7 (Version None)
Quarter: 2011Q1

REPORT INFORMATION
  Report Type: 
  Country: None (occurrence: None)
  Receive Date: 20110215
  Receipt Date: 20110210
  Transmission Date: 20110831
  Serious: No
  Sender: FDA-Public Use
  Company Number: US-PFIZER INC-2011030617

PATIENT
  Sex: Male

DRUGS (4)
  1. TRICOR [Concomitant]
     Indication: BLOOD CHOLESTEROL ABNORMAL
     Dosage: 145 MG, 1X/DAY
     Route: 048
  2. GEODON [Suspect]
     Indication: DEPRESSION
  3. GEODON [Suspect]
     Indication: ANXIETY
     Dosage: 80 MG, 1X/DAY
     Route: 048
     Dates: start: 20110203, end: 20110206
  4. PAROXETINE [Concomitant]
     Indication: DEPRESSION
     Dosage: 20 MG, 1X/DAY
     Route: 048

REACTIONS (4)
  - AGITATION [None]
  - NAUSEA [None]
  - HEADACHE [None]
  - HYPERTENSION [None]
